FAERS Safety Report 8780270 (Version 1)
Quarter: 2012Q4

REPORT INFORMATION
  Report Type: Spontaneous
  Country: US (occurrence: None)
  Receive Date: 20120829
  Receipt Date: 20120829
  Transmission Date: 20130627
  Serious: Yes (Death)
  Sender: FDA-Public Use
  Company Number: MC201200524

PATIENT
  Age: 81 Year
  Sex: Female

DRUGS (1)
  1. ANGIOMAX [Suspect]
     Route: 040

REACTIONS (1)
  - Acute myocardial infarction [None]
